FAERS Safety Report 16872188 (Version 1)
Quarter: 2019Q4

REPORT INFORMATION
  Report Type: Report from Study
  Country: US (occurrence: US)
  Receive Date: 20191001
  Receipt Date: 20191001
  Transmission Date: 20200122
  Serious: Yes (Death)
  Sender: FDA-Public Use
  Company Number: US-ROCHE-2390659

PATIENT
  Sex: Male
  Weight: 94.89 kg

DRUGS (10)
  1. METFORMIN [Concomitant]
     Active Substance: METFORMIN HYDROCHLORIDE
     Dosage: ONGOING: NO
     Route: 065
     Dates: start: 201609
  2. ACTEMRA [Suspect]
     Active Substance: TOCILIZUMAB
     Indication: RHEUMATOID ARTHRITIS
     Dosage: ONGOING: NO
     Route: 058
     Dates: start: 201707
  3. LOSARTIN [Concomitant]
     Active Substance: LOSARTAN
     Dosage: UNKNOWN SCHEDULE;ONGOING: NO
     Route: 065
     Dates: start: 201611
  4. CLONIDINE. [Concomitant]
     Active Substance: CLONIDINE
     Dosage: UNKNOWN SCHEDULE ;ONGOING: NO
     Route: 065
     Dates: start: 201809
  5. GLIMEPIRIDE. [Concomitant]
     Active Substance: GLIMEPIRIDE
     Dosage: UNKNOWN SCHEDULE;ONGOING: NO
     Route: 065
     Dates: start: 201809
  6. MEDROL [Concomitant]
     Active Substance: METHYLPREDNISOLONE
     Dosage: TAKES 2 IN MORNING 1 IN EVENING;ONGOING: NO
     Route: 065
     Dates: start: 201707
  7. ATORVASTATIN [Concomitant]
     Active Substance: ATORVASTATIN
     Dosage: UNKNOWN SCHEDULE ;ONGOING: NO
     Route: 065
     Dates: start: 201611
  8. METOPROLOL TARTRATE. [Concomitant]
     Active Substance: METOPROLOL TARTRATE
     Dosage: UNKNOWN SCHEDULE;ONGOING: NO
     Route: 065
     Dates: start: 201611
  9. CHLORTHALIDONE. [Concomitant]
     Active Substance: CHLORTHALIDONE
     Dosage: UNKNOWN SCHEDULE ;ONGOING: NO
     Route: 065
     Dates: start: 20161122
  10. JARDIANCE [Concomitant]
     Active Substance: EMPAGLIFLOZIN
     Dosage: UNKNOWN START DATE  1 EVERY MORNING;ONGOING: NO
     Route: 065

REACTIONS (1)
  - Death [Fatal]
